FAERS Safety Report 7057124-2 (Version None)
Quarter: 2010Q4

REPORT INFORMATION
  Report Type: 
  Country: None (occurrence: None)
  Receive Date: 20101022
  Receipt Date: 20101008
  Transmission Date: 20110411
  Serious: Yes (Other)
  Sender: FDA-Public Use
  Company Number: PHHY2010ZA56221

PATIENT
  Age: 20 Year
  Sex: Male
  Weight: 53.4 kg

DRUGS (2)
  1. GLEEVEC [Suspect]
     Indication: GASTROINTESTINAL STROMAL TUMOUR
     Dosage: UNK
     Dates: start: 20090712
  2. CREON [Concomitant]

REACTIONS (6)
  - FATIGUE [None]
  - MYALGIA [None]
  - POST GASTRIC SURGERY SYNDROME [None]
  - SURGERY [None]
  - SYNCOPE [None]
  - THERAPY RESPONDER [None]
